FAERS Safety Report 24294171 (Version 1)
Quarter: 2024Q3

REPORT INFORMATION
  Report Type: Spontaneous
  Country: US (occurrence: US)
  Receive Date: 20240906
  Receipt Date: 20240906
  Transmission Date: 20241017
  Serious: No
  Sender: PFIZER
  Company Number: US-PFIZER INC-202400250120

PATIENT
  Age: 84 Year
  Sex: Female
  Weight: 63.96 kg

DRUGS (4)
  1. CYTOMEL [Suspect]
     Active Substance: LIOTHYRONINE SODIUM
     Indication: Tri-iodothyronine abnormal
     Dosage: 25 UG
     Route: 048
     Dates: start: 2020
  2. CYTOMEL [Suspect]
     Active Substance: LIOTHYRONINE SODIUM
     Dosage: HALF A TABLET (ONE DAY)
     Route: 048
  3. CYTOMEL [Suspect]
     Active Substance: LIOTHYRONINE SODIUM
     Dosage: QUARTER OF A TABLET THE NEXT DAY, OR SKIP A DOSE
     Route: 048
  4. LEVOXYL [Concomitant]
     Active Substance: LEVOTHYROXINE SODIUM
     Indication: Thyroxine abnormal
     Dosage: 25 UG, 1X/DAY
     Route: 048
     Dates: start: 2020

REACTIONS (3)
  - Tri-iodothyronine increased [Unknown]
  - Off label use [Unknown]
  - Incorrect dose administered [Unknown]

NARRATIVE: CASE EVENT DATE: 20230101
